FAERS Safety Report 24865474 (Version 2)
Quarter: 2025Q2

REPORT INFORMATION
  Report Type: Spontaneous
  Country: US (occurrence: US)
  Receive Date: 20250121
  Receipt Date: 20250513
  Transmission Date: 20250717
  Serious: No
  Sender: BRISTOL-MYERS SQUIBB COMPANY
  Company Number: US-BRISTOL-MYERS SQUIBB COMPANY-2025-008801

PATIENT
  Age: 67 Year
  Sex: Female
  Weight: 60.78 kg

DRUGS (2)
  1. POMALYST [Suspect]
     Active Substance: POMALIDOMIDE
     Indication: Plasma cell myeloma
     Route: 048
  2. REVLIMID [Suspect]
     Active Substance: LENALIDOMIDE
     Indication: Product used for unknown indication

REACTIONS (10)
  - Muscular weakness [Unknown]
  - Pain in extremity [Unknown]
  - Abdominal pain upper [Unknown]
  - Eye pain [Unknown]
  - Rash [Unknown]
  - Vaginal haemorrhage [Unknown]
  - Skin exfoliation [Unknown]
  - Headache [Unknown]
  - Arthralgia [Unknown]
  - Adverse event [Unknown]
